FAERS Safety Report 11441580 (Version 1)
Quarter: 2015Q3

REPORT INFORMATION
  Report Type: Report from Study
  Country: CO (occurrence: CO)
  Receive Date: 20150901
  Receipt Date: 20150901
  Transmission Date: 20151125
  Serious: Yes (Hospitalization, Other)
  Sender: FDA-Public Use
  Company Number: CO-ELI_LILLY_AND_COMPANY-CO201508007914

PATIENT
  Age: 68 Year
  Sex: Female
  Weight: 56 kg

DRUGS (5)
  1. FORTEO [Suspect]
     Active Substance: TERIPARATIDE
     Indication: OSTEOPOROSIS
     Dosage: 20 UG, QD
     Route: 058
     Dates: start: 20150715
  2. EPAMIN                             /00017401/ [Concomitant]
     Indication: SEIZURE
     Dosage: 100 MG, EVERY 8 HRS
  3. CALCITRAL [Concomitant]
  4. CALCITRIOL. [Concomitant]
     Active Substance: CALCITRIOL
     Dosage: 0.5 MG, QD
  5. TIROXIN                            /00068002/ [Concomitant]
     Indication: HYPERTHYROIDISM
     Dosage: 125 UG, QD

REACTIONS (3)
  - Drug hypersensitivity [Unknown]
  - Dehydration [Unknown]
  - Vomiting [Unknown]

NARRATIVE: CASE EVENT DATE: 20150815
